FAERS Safety Report 15227090 (Version 2)
Quarter: 2018Q3

REPORT INFORMATION
  Report Type: Spontaneous
  Country: US (occurrence: US)
  Receive Date: 20180801
  Receipt Date: 20180803
  Transmission Date: 20181010
  Serious: Yes (Hospitalization)
  Sender: FDA-Public Use
  Company Number: US-TEVA-2018-US-934822

PATIENT
  Age: 20 Year
  Sex: Female

DRUGS (12)
  1. ISAVUCONAZOLE SULFATE [Interacting]
     Active Substance: ISAVUCONAZOLE
     Indication: INFECTION
     Dosage: MAINTENANCE DOSE (24 HOURS AFTER LOADING DOSE; GIVEN INTRAVENOUSLY OVER 1 HOUR): ISAVUCONAZONIUM ...
     Route: 041
  2. VORICONAZOLE. [Interacting]
     Active Substance: VORICONAZOLE
     Indication: ANTIFUNGAL TREATMENT
     Route: 042
  3. BASILIXIMAB [Concomitant]
     Active Substance: BASILIXIMAB
     Indication: IMMUNOSUPPRESSANT DRUG THERAPY
     Dosage: POST?OPERATIVE DAY 1 AND 5
     Route: 042
  4. ISAVUCONAZOLE SULFATE [Interacting]
     Active Substance: ISAVUCONAZOLE
     Indication: ASPERGILLUS INFECTION
     Dosage: LOADING DOSE (6 DOSES, GIVEN INTRAVENOUSLY OVER 1 HOUR): ISAVUCONAZONIUM SULFATE 372 MG (EQUIVALE...
     Route: 041
  5. AMIKACIN. [Concomitant]
     Active Substance: AMIKACIN
     Indication: ANTIBIOTIC THERAPY
     Dosage: DOSED BASED ON TDM WITH A GOAL PEAK OF 60 MCG/ML
     Route: 065
  6. CEFTAZIDIME. [Concomitant]
     Active Substance: CEFTAZIDIME
     Indication: ANTIBIOTIC THERAPY
     Route: 042
  7. LINEZOLID. [Concomitant]
     Active Substance: LINEZOLID
     Indication: ANTIBIOTIC THERAPY
     Route: 042
  8. TACROLIMUS. [Concomitant]
     Active Substance: TACROLIMUS
     Indication: IMMUNOSUPPRESSANT DRUG THERAPY
     Dosage: DOSED BASED ON TDM WITH GOAL 12?HOUR TROUGH OF 8?12 NG/ML
     Route: 065
  9. AVIBACTUM [Concomitant]
     Route: 065
  10. METHYLPREDNISOLONE. [Interacting]
     Active Substance: METHYLPREDNISOLONE
     Indication: IMMUNOSUPPRESSANT DRUG THERAPY
     Dosage: RECEIVED THREE DOSES, AND LATER SWITCHED TO PREDNISONE
     Route: 042
  11. PREDNISONE. [Suspect]
     Active Substance: PREDNISONE
     Indication: IMMUNOSUPPRESSANT DRUG THERAPY
     Dosage: LATER, DOSE TAPERED
     Route: 048
  12. MYCOPHENOLATE MOFETIL. [Concomitant]
     Active Substance: MYCOPHENOLATE MOFETIL
     Indication: IMMUNOSUPPRESSANT DRUG THERAPY
     Route: 048

REACTIONS (6)
  - Abdominal discomfort [Unknown]
  - Drug level increased [Unknown]
  - Drug level decreased [Unknown]
  - Diarrhoea [Unknown]
  - Drug interaction [Unknown]
  - Nausea [Not Recovered/Not Resolved]
